FAERS Safety Report 25836295 (Version 1)
Quarter: 2025Q3

REPORT INFORMATION
  Report Type: Spontaneous
  Country: US (occurrence: None)
  Receive Date: 20250922
  Receipt Date: 20250922
  Transmission Date: 20251020
  Serious: Yes (Hospitalization)
  Sender: FDA-CTU
  Company Number: None

PATIENT
  Age: 76 Year
  Sex: Male
  Weight: 114.17 kg

DRUGS (20)
  1. FABHALTA [Suspect]
     Active Substance: IPTACOPAN HYDROCHLORIDE
     Indication: Haemoglobinuria
     Dosage: FREQUENCY : TWICE A DAY;?
     Route: 048
     Dates: start: 20240207
  2. MINERALS\VITAMINS [Concomitant]
     Active Substance: MINERALS\VITAMINS
  3. BAYER ASPIRIN [Concomitant]
     Active Substance: ASPIRIN
  4. CETIRIZINE [Concomitant]
     Active Substance: CETIRIZINE HYDROCHLORIDE
  5. EPINEPHRINE [Concomitant]
     Active Substance: EPINEPHRINE
  6. FOLIC ACID [Concomitant]
     Active Substance: FOLIC ACID
  7. HYDROCHLOROTHIAZIDE [Concomitant]
     Active Substance: HYDROCHLOROTHIAZIDE
  8. LOSARTAN [Concomitant]
     Active Substance: LOSARTAN
  9. MAGNESIUM GLYCINATE [Concomitant]
     Active Substance: MAGNESIUM GLYCINATE
  10. Magnesium Oxide Mg [Concomitant]
  11. Multivitamin Adults [Concomitant]
  12. Ocean Ultra Saline Mist [Concomitant]
  13. FISH OIL\OMEGA-3 FATTY ACIDS [Concomitant]
     Active Substance: FISH OIL\OMEGA-3 FATTY ACIDS
  14. QC Tumeric Complex [Concomitant]
  15. REFRESH OPTIVE [Concomitant]
     Active Substance: CARBOXYMETHYLCELLULOSE SODIUM\GLYCERIN
  16. SB Docusate Sodium [Concomitant]
  17. Sodium Chloride lntravenous [Concomitant]
  18. Vitamin B12 Sublingual [Concomitant]
  19. Vitamin D/Zinc [Concomitant]
  20. Citrate capsule [Concomitant]

REACTIONS (4)
  - Haemoglobin decreased [None]
  - Hernia repair [None]
  - Orchidectomy [None]
  - Post procedural infection [None]
